FAERS Safety Report 4263918-9 (Version None)
Quarter: 2004Q1

REPORT INFORMATION
  Report Type: 
  Country: None (occurrence: None)
  Receive Date: 20040102
  Receipt Date: 20031208
  Transmission Date: 20041129
  Serious: Yes (Hospitalization)
  Sender: FDA-Public Use
  Company Number: B0317361A

PATIENT
  Age: 41 Year
  Sex: Male

DRUGS (4)
  1. EPIVIR [Suspect]
     Indication: HIV INFECTION
     Dosage: 150 MG/TWICE PER DAY
     Dates: start: 20000101
  2. RETROVIR [Suspect]
     Indication: HIV INFECTION
     Dosage: 300 MG/TWICE PER DAY
     Dates: start: 20000101
  3. EFAVIRENZ (FORMULATION UNKNOWN) (EFAVIRENZ) [Suspect]
     Indication: HIV INFECTION
     Dosage: 600 MG/ AT NIGHT
     Dates: start: 20000101
  4. COTRIM [Concomitant]

REACTIONS (7)
  - ACID FAST BACILLI INFECTION [None]
  - ACUTE RESPIRATORY DISTRESS SYNDROME [None]
  - DEHYDRATION [None]
  - GENERAL PHYSICAL HEALTH DETERIORATION [None]
  - PYREXIA [None]
  - RESPIRATORY FAILURE [None]
  - TUBERCULOSIS [None]
